FAERS Safety Report 24113974 (Version 1)
Quarter: 2024Q3

REPORT INFORMATION
  Report Type: Spontaneous
  Country: US (occurrence: US)
  Receive Date: 20240720
  Receipt Date: 20240720
  Transmission Date: 20241017
  Serious: Yes (Other)
  Sender: AUROBINDO
  Company Number: US-AUROBINDO-AUR-APL-2024-035086

PATIENT
  Sex: Male

DRUGS (7)
  1. HYDRALAZINE HYDROCHLORIDE [Suspect]
     Active Substance: HYDRALAZINE HYDROCHLORIDE
     Indication: Hypertension
     Dosage: UNK
     Route: 065
  2. AXITINIB [Concomitant]
     Active Substance: AXITINIB
     Indication: Product used for unknown indication
     Dosage: UNK
     Route: 065
  3. HYDROXYCHLOROQUINE [Concomitant]
     Active Substance: HYDROXYCHLOROQUINE
     Indication: Product used for unknown indication
     Dosage: 200 MILLIGRAM, TWO TIMES A DAY
     Route: 065
  4. METHYLPREDNISOLONE [Concomitant]
     Active Substance: METHYLPREDNISOLONE
     Indication: Product used for unknown indication
     Dosage: 250 MILLIGRAM, DAILY FOR 3 DAYS
     Route: 065
  5. PEMBROLIZUMAB [Concomitant]
     Active Substance: PEMBROLIZUMAB
     Indication: Renal cell carcinoma
     Dosage: UNK, 3 CYCLES
     Route: 065
  6. PREDNISONE [Concomitant]
     Active Substance: PREDNISONE
     Indication: Product used for unknown indication
     Dosage: 60 MILLIGRAM, DAILY
     Route: 065
  7. PREDNISONE [Concomitant]
     Active Substance: PREDNISONE
     Dosage: 7.5 MILLIGRAM, DAILY
     Route: 065

REACTIONS (1)
  - Lupus nephritis [Recovered/Resolved]
